FAERS Safety Report 5638942-1 (Version None)
Quarter: 2008Q1

REPORT INFORMATION
  Report Type: 
  Country: None (occurrence: None)
  Receive Date: 20080225
  Receipt Date: 20080225
  Transmission Date: 20080703
  Serious: Yes (Other)
  Sender: FDA-Public Use
  Company Number: None

PATIENT
  Age: 46 Year
  Sex: Female
  Weight: 121.564 kg

DRUGS (2)
  1. AVELOX [Suspect]
     Indication: BRONCHITIS
     Dosage: 400 MG  1 X DAILY PO
     Route: 048
     Dates: start: 20080219, end: 20080221
  2. BIAXIN [Suspect]
     Indication: BRONCHITIS
     Dosage: 500 MG  1 X DAILY  PO
     Route: 048
     Dates: start: 20080222, end: 20080224

REACTIONS (6)
  - ANXIETY [None]
  - DIZZINESS [None]
  - HALLUCINATION [None]
  - PARANOIA [None]
  - SLEEP DISORDER [None]
  - SUICIDAL IDEATION [None]
